FAERS Safety Report 25478239 (Version 2)
Quarter: 2025Q3

REPORT INFORMATION
  Report Type: Spontaneous
  Country: GB (occurrence: GB)
  Receive Date: 20250625
  Receipt Date: 20250711
  Transmission Date: 20251020
  Serious: Yes (Hospitalization, Disabling, Other)
  Sender: ACCORD
  Company Number: None

PATIENT
  Age: 54 Year
  Sex: Male
  Weight: 86 kg

DRUGS (56)
  1. AMITRIPTYLINE [Suspect]
     Active Substance: AMITRIPTYLINE
     Indication: Neuralgia
     Dosage: AT NIGHT
     Dates: start: 20220115
  2. PREGABALIN [Suspect]
     Active Substance: PREGABALIN
     Indication: Neuralgia
     Dates: start: 20220803
  3. PREDNISOLONE [Suspect]
     Active Substance: PREDNISOLONE
     Indication: Product used for unknown indication
     Route: 048
     Dates: start: 20230911, end: 20230918
  4. OXCARBAZEPINE [Suspect]
     Active Substance: OXCARBAZEPINE
     Indication: Product used for unknown indication
     Dates: start: 20221013, end: 20221207
  5. OXYCODONE HYDROCHLORIDE [Suspect]
     Active Substance: OXYCODONE HYDROCHLORIDE
     Indication: Product used for unknown indication
     Dates: start: 20220803, end: 20230727
  6. HUMAN IMMUNOGLOBULIN G [Suspect]
     Active Substance: HUMAN IMMUNOGLOBULIN G
     Indication: Product used for unknown indication
     Dates: start: 20240115, end: 20250117
  7. HYPROMELLOSES [Concomitant]
     Active Substance: HYPROMELLOSES
     Dosage: OCC LACRI-LUBE OINTMENT AT NIGHT, G IKERVIS EYE DROPS ONCE A DAY - ALL LONG TERM.
  8. LACOSAMIDE [Concomitant]
     Active Substance: LACOSAMIDE
     Dates: start: 20231023, end: 20231101
  9. DIAZEPAM [Concomitant]
     Active Substance: DIAZEPAM
  10. FERROUS FUMARATE [Concomitant]
     Active Substance: FERROUS FUMARATE
     Route: 048
  11. DULOXETINE [Concomitant]
     Active Substance: DULOXETINE
     Dates: start: 20230911
  12. ACYCLOVIR [Concomitant]
     Active Substance: ACYCLOVIR
     Dates: start: 20220328, end: 20220403
  13. UNSPECIFIED INGREDIENT [Concomitant]
     Active Substance: UNSPECIFIED INGREDIENT
     Dates: start: 20230408, end: 20230510
  14. LIDOCAINE [Concomitant]
     Active Substance: LIDOCAINE
     Route: 062
     Dates: start: 20230428
  15. MAGNESIUM [Concomitant]
     Active Substance: MAGNESIUM
     Dates: start: 20230316, end: 20230316
  16. GABAPENTIN [Concomitant]
     Active Substance: GABAPENTIN
     Dates: start: 20220217, end: 20220227
  17. ZOPICLONE [Concomitant]
     Active Substance: ZOPICLONE
     Indication: Insomnia
  18. CARBAMAZEPINE [Concomitant]
     Active Substance: CARBAMAZEPINE
     Indication: Neuralgia
     Dates: start: 20220420, end: 20220503
  19. BACLOFEN [Concomitant]
     Active Substance: BACLOFEN
     Indication: Neuralgia
  20. PHENYTOIN [Concomitant]
     Active Substance: PHENYTOIN
     Dates: start: 20220526
  21. COCODAMOL [Concomitant]
     Active Substance: ACETAMINOPHEN\CODEINE PHOSPHATE
     Dates: start: 20230911
  22. ACETAMINOPHEN\TRAMADOL [Concomitant]
     Active Substance: ACETAMINOPHEN\TRAMADOL
     Dates: start: 20220413
  23. OMEPRAZOLE [Concomitant]
     Active Substance: OMEPRAZOLE
     Dates: start: 20230911
  24. LAMOTRIGINE [Concomitant]
     Active Substance: LAMOTRIGINE
     Indication: Pain
     Dates: start: 20221217, end: 20221224
  25. MIRTAZAPINE [Concomitant]
     Active Substance: MIRTAZAPINE
     Indication: Depression
     Dosage: AT NIGHT
     Route: 048
     Dates: start: 20230412
  26. BUPRENORPHINE [Concomitant]
     Active Substance: BUPRENORPHINE
     Route: 062
  27. NALTREXONE [Concomitant]
     Active Substance: NALTREXONE
  28. NAPROXEN [Concomitant]
     Active Substance: NAPROXEN
  29. ONDANSETRON [Concomitant]
     Active Substance: ONDANSETRON
     Indication: Nausea
  30. CARBAMAZEPINE [Concomitant]
     Active Substance: CARBAMAZEPINE
     Indication: Neuralgia
     Dates: start: 20220404
  31. BACLOFEN [Concomitant]
     Active Substance: BACLOFEN
     Indication: Neuralgia
     Dates: end: 20220803
  32. PREGABALIN [Suspect]
     Active Substance: PREGABALIN
     Indication: Neuralgia
  33. PREGABALIN [Suspect]
     Active Substance: PREGABALIN
     Indication: Neuralgia
     Dates: start: 20221111, end: 20221118
  34. PREGABALIN [Suspect]
     Active Substance: PREGABALIN
     Indication: Neuralgia
     Dates: start: 20220803
  35. PREGABALIN [Suspect]
     Active Substance: PREGABALIN
     Indication: Neuralgia
     Dates: start: 20221119, end: 20221126
  36. PREGABALIN [Suspect]
     Active Substance: PREGABALIN
     Indication: Neuralgia
     Dates: start: 20221127
  37. PHENYTOIN [Concomitant]
     Active Substance: PHENYTOIN
     Dates: start: 20220526
  38. COCODAMOL [Concomitant]
     Active Substance: ACETAMINOPHEN\CODEINE PHOSPHATE
     Dates: start: 20220217
  39. LAMOTRIGINE [Concomitant]
     Active Substance: LAMOTRIGINE
     Indication: Pain
     Dates: start: 20230128, end: 20230203
  40. LAMOTRIGINE [Concomitant]
     Active Substance: LAMOTRIGINE
     Indication: Pain
     Dates: start: 20230204, end: 20230210
  41. LAMOTRIGINE [Concomitant]
     Active Substance: LAMOTRIGINE
     Indication: Pain
     Dates: start: 20230223, end: 20230301
  42. LAMOTRIGINE [Concomitant]
     Active Substance: LAMOTRIGINE
     Indication: Pain
     Dates: start: 20230302
  43. LAMOTRIGINE [Concomitant]
     Active Substance: LAMOTRIGINE
     Indication: Pain
     Dates: start: 20230211, end: 20230217
  44. LAMOTRIGINE [Concomitant]
     Active Substance: LAMOTRIGINE
     Indication: Pain
     Dates: start: 20221231, end: 20230107
  45. LAMOTRIGINE [Concomitant]
     Active Substance: LAMOTRIGINE
     Indication: Pain
     Dates: start: 20230114, end: 20230121
  46. LACOSAMIDE [Concomitant]
     Active Substance: LACOSAMIDE
     Dates: start: 20231112, end: 20231121
  47. LACOSAMIDE [Concomitant]
     Active Substance: LACOSAMIDE
     Dates: start: 20231122, end: 20231201
  48. LACOSAMIDE [Concomitant]
     Active Substance: LACOSAMIDE
     Dates: start: 20231202, end: 20231211
  49. LACOSAMIDE [Concomitant]
     Active Substance: LACOSAMIDE
     Dates: start: 20231102, end: 20241111
  50. UNSPECIFIED INGREDIENT [Concomitant]
     Active Substance: UNSPECIFIED INGREDIENT
     Dates: start: 20220509
  51. LIDOCAINE [Concomitant]
     Active Substance: LIDOCAINE
     Dates: start: 20230316, end: 20230316
  52. GABAPENTIN [Concomitant]
     Active Substance: GABAPENTIN
     Dates: start: 20220328, end: 20220412
  53. GABAPENTIN [Concomitant]
     Active Substance: GABAPENTIN
     Dates: start: 20220413
  54. PREDNISOLONE [Suspect]
     Active Substance: PREDNISOLONE
     Indication: Product used for unknown indication
  55. PREDNISOLONE [Suspect]
     Active Substance: PREDNISOLONE
     Indication: Product used for unknown indication
     Dates: start: 20220328, end: 20220403
  56. HUMAN IMMUNOGLOBULIN G [Suspect]
     Active Substance: HUMAN IMMUNOGLOBULIN G
     Indication: Product used for unknown indication
     Dates: start: 20231124, end: 20231126

REACTIONS (45)
  - COVID-19 [Unknown]
  - Neuropathy peripheral [Not Recovered/Not Resolved]
  - Toothache [Not Recovered/Not Resolved]
  - Urinary tract infection [Not Recovered/Not Resolved]
  - Hepatic function abnormal [Not Recovered/Not Resolved]
  - Electric shock sensation [Not Recovered/Not Resolved]
  - Tinnitus [Not Recovered/Not Resolved]
  - Mental impairment [Not Recovered/Not Resolved]
  - Chest pain [Unknown]
  - Cough [Unknown]
  - Immunosuppression [Unknown]
  - Pyrexia [Not Recovered/Not Resolved]
  - Hypothyroidism [Not Recovered/Not Resolved]
  - Paraesthesia [Not Recovered/Not Resolved]
  - Dizziness [Not Recovered/Not Resolved]
  - Nausea [Not Recovered/Not Resolved]
  - White blood cell disorder [Not Recovered/Not Resolved]
  - Photophobia [Not Recovered/Not Resolved]
  - Spinal pain [Not Recovered/Not Resolved]
  - Lip swelling [Not Recovered/Not Resolved]
  - Rash vesicular [Unknown]
  - Urinary bladder haemorrhage [Unknown]
  - Carpal tunnel syndrome [Unknown]
  - Dry eye [Unknown]
  - Trigeminal neuralgia [Not Recovered/Not Resolved]
  - Haematological infection [Not Recovered/Not Resolved]
  - Amnesia [Not Recovered/Not Resolved]
  - Blindness [Not Recovered/Not Resolved]
  - Hypoaesthesia [Not Recovered/Not Resolved]
  - Brain fog [Not Recovered/Not Resolved]
  - Headache [Not Recovered/Not Resolved]
  - Depression [Not Recovered/Not Resolved]
  - Anxiety [Unknown]
  - Pain in extremity [Not Recovered/Not Resolved]
  - Suicidal ideation [Not Recovered/Not Resolved]
  - Mouth swelling [Not Recovered/Not Resolved]
  - Dyspnoea [Not Recovered/Not Resolved]
  - Flushing [Unknown]
  - Influenza like illness [Recovered/Resolved]
  - Punctate keratitis [Unknown]
  - Facial pain [Not Recovered/Not Resolved]
  - Lethargy [Not Recovered/Not Resolved]
  - Hyponatraemia [Not Recovered/Not Resolved]
  - Somnolence [Not Recovered/Not Resolved]
  - Confusional state [Not Recovered/Not Resolved]

NARRATIVE: CASE EVENT DATE: 20220115
